FAERS Safety Report 13560700 (Version 1)
Quarter: 2017Q2

REPORT INFORMATION
  Report Type: Spontaneous
  Country: US (occurrence: US)
  Receive Date: 20170518
  Receipt Date: 20170518
  Transmission Date: 20170830
  Serious: No
  Sender: FDA-Public Use
  Company Number: US-ROCHE-790911

PATIENT
  Sex: Female
  Weight: 45.4 kg

DRUGS (2)
  1. ALEVE [Suspect]
     Active Substance: NAPROXEN SODIUM
     Indication: PRODUCT USED FOR UNKNOWN INDICATION
     Route: 065
  2. MIDOL PRODUCT NOS [Concomitant]
     Route: 065

REACTIONS (3)
  - Hunger [Unknown]
  - Dizziness [Unknown]
  - Fatigue [Unknown]
